FAERS Safety Report 9708330 (Version 2)
Quarter: 2013Q4

REPORT INFORMATION
  Report Type: Report from Study
  Country: US (occurrence: US)
  Receive Date: 20131125
  Receipt Date: 20131220
  Transmission Date: 20140711
  Serious: Yes (Hospitalization, Disabling)
  Sender: FDA-Public Use
  Company Number: US-ACTELION-A-NJ2013-91528

PATIENT
  Age: 51 Year
  Sex: Male

DRUGS (4)
  1. VELETRI [Suspect]
     Indication: PULMONARY ARTERIAL HYPERTENSION
     Dosage: 30 NG/KG, PER MIN
     Route: 042
     Dates: start: 20130801
  2. VELETRI [Suspect]
     Dosage: 28 NG/KG, PER MIN
     Route: 042
     Dates: start: 20130806
  3. TRACLEER [Concomitant]
     Indication: PULMONARY ARTERIAL HYPERTENSION
     Route: 048
  4. COUMADIN [Concomitant]

REACTIONS (3)
  - Right ventricular failure [Recovering/Resolving]
  - Diuretic therapy [Recovering/Resolving]
  - Fluid overload [Recovering/Resolving]
